FAERS Safety Report 5398780-4 (Version None)
Quarter: 2007Q3

REPORT INFORMATION
  Report Type: 
  Country: None (occurrence: None)
  Receive Date: 20070724
  Receipt Date: 20070712
  Transmission Date: 20080115
  Serious: Yes (Other)
  Sender: FDA-Public Use
  Company Number: SPV1-2007-03516

PATIENT
  Age: 63 Year
  Sex: Male

DRUGS (3)
  1. PENTASA [Suspect]
     Indication: COLITIS ULCERATIVE
     Dosage: 1000 MG, 3X/DAY:TID, ORAL; 250 MG, 1X/DAY; QD, ORAL
     Route: 048
     Dates: start: 20070301, end: 20070511
  2. PENTASA [Suspect]
     Indication: COLITIS ULCERATIVE
     Dosage: 1000 MG, 3X/DAY:TID, ORAL; 250 MG, 1X/DAY; QD, ORAL
     Route: 048
     Dates: start: 20070521
  3. PREDNISOLONE [Concomitant]

REACTIONS (9)
  - BLOOD ALKALINE PHOSPHATASE INCREASED [None]
  - BLOOD LACTATE DEHYDROGENASE INCREASED [None]
  - CONDITION AGGRAVATED [None]
  - DISEASE RECURRENCE [None]
  - INTERSTITIAL LUNG DISEASE [None]
  - PNEUMONIA CYTOMEGALOVIRAL [None]
  - PYREXIA [None]
  - RASH [None]
  - WHITE BLOOD CELL COUNT INCREASED [None]
